FAERS Safety Report 20116960 (Version 2)
Quarter: 2022Q4

REPORT INFORMATION
  Report Type: Spontaneous
  Country: US (occurrence: US)
  Receive Date: 20211126
  Receipt Date: 20221010
  Transmission Date: 20230113
  Serious: Yes (Other)
  Sender: FDA-Public Use
  Company Number: US-SA-SAC20211123001197

PATIENT
  Age: 65 Year
  Sex: Male

DRUGS (1)
  1. ZANTAC [Suspect]
     Active Substance: RANITIDINE HYDROCHLORIDE
     Indication: Dyspepsia
     Dosage: 150 MG, QD
     Dates: start: 201501, end: 201801

REACTIONS (4)
  - Oesophageal cancer metastatic [Unknown]
  - Metastases to neck [Unknown]
  - Throat cancer [Unknown]
  - Head and neck cancer [Unknown]

NARRATIVE: CASE EVENT DATE: 20200101
